FAERS Safety Report 12301408 (Version 1)
Quarter: 2016Q2

REPORT INFORMATION
  Report Type: Spontaneous
  Country: CH (occurrence: CH)
  Receive Date: 20160425
  Receipt Date: 20160425
  Transmission Date: 20160815
  Serious: Yes (Hospitalization)
  Sender: FDA-Public Use
  Company Number: CH-TEVA-653047ISR

PATIENT
  Age: 67 Year
  Sex: Male

DRUGS (14)
  1. TRUVADA [Suspect]
     Active Substance: EMTRICITABINE\TENOFOVIR DISOPROXIL FUMARATE
     Indication: HIV INFECTION
     Dosage: 245 MILLIGRAM DAILY; UNSPECIFIED STRENGTH
     Route: 048
     Dates: start: 20160210, end: 20160304
  2. ATORVASTATIN [Concomitant]
     Active Substance: ATORVASTATIN
     Dosage: UNSPECIFIED STRENGTH, CONTINUING
     Route: 065
  3. AUGMENTIN [Concomitant]
     Active Substance: AMOXICILLIN\CLAVULANATE POTASSIUM
     Indication: PNEUMOCYSTIS JIROVECII PNEUMONIA
     Dosage: 6.6 GRAM DAILY;
     Route: 042
     Dates: start: 20160128, end: 20160208
  4. NOPIL FORTE [Suspect]
     Active Substance: SULFAMETHOXAZOLE\TRIMETHOPRIM
     Indication: PNEUMOCYSTIS JIROVECII PNEUMONIA
     Dosage: 4 DOSAGE FORMS DAILY; DF: 400MG\80MG
     Route: 042
     Dates: start: 20160205, end: 20160214
  5. ISENTRESS [Concomitant]
     Active Substance: RALTEGRAVIR POTASSIUM
     Dosage: 400 MILLIGRAM DAILY; UNSPECIFIED STRENGTH, CONTINUING
     Route: 065
     Dates: start: 20160210
  6. PASPERTIN [Concomitant]
     Active Substance: METOCLOPRAMIDE HYDROCHLORIDE
     Dosage: UNSPECIFIED STRENGTH, CONTINUING
     Route: 065
  7. NEBILET [Concomitant]
     Active Substance: NEBIVOLOL
     Dosage: UNSPECIFIED STRENGTH, CONTINUING
     Route: 065
  8. PREZISTA [Concomitant]
     Active Substance: DARUNAVIR ETHANOLATE
     Dosage: 800 MILLIGRAM DAILY; UNSPECIFIED STRENGTH, CONTINUING
     Route: 065
     Dates: start: 20160210
  9. COSAAR [Concomitant]
     Active Substance: LOSARTAN POTASSIUM
     Dosage: UNSPECIFIED STRENGTH, CONTINUING
     Route: 065
  10. NOPIL FORTE [Suspect]
     Active Substance: SULFAMETHOXAZOLE\TRIMETHOPRIM
     Dosage: 2 DOSAGE FORMS DAILY; STRENGTH 800MG/160MG, DF: 800MG/160MG
     Route: 048
     Dates: start: 20160215, end: 20160223
  11. PANTOZOL [Concomitant]
     Active Substance: PANTOPRAZOLE SODIUM
     Dosage: UNSPECIFIED STRENGTH, CONTINUING
     Route: 065
  12. BYSTOLIC [Concomitant]
     Active Substance: NEBIVOLOL HYDROCHLORIDE
     Route: 065
  13. NORVIR [Concomitant]
     Active Substance: RITONAVIR
     Dosage: 100 MILLIGRAM DAILY; UNSPECIFIED STRENGTH, CONTINUING
     Route: 065
     Dates: start: 20160201
  14. ASPIRIN CARDIO [Concomitant]
     Active Substance: ASPIRIN
     Dosage: UNSPECIFIED STRENGTH, CONTINUING
     Route: 065

REACTIONS (2)
  - Fanconi syndrome acquired [Recovered/Resolved]
  - Pancytopenia [Recovered/Resolved]

NARRATIVE: CASE EVENT DATE: 201602
